FAERS Safety Report 9687879 (Version 2)
Quarter: 2013Q4

REPORT INFORMATION
  Report Type: Spontaneous
  Country: GB (occurrence: None)
  Receive Date: 20131112
  Receipt Date: 20131120
  Transmission Date: 20140711
  Serious: Yes (Disabling, Other)
  Sender: FDA-Public Use
  Company Number: AUR-APL-2013-09361

PATIENT
  Age: 64 Year
  Sex: Male
  Weight: 86 kg

DRUGS (4)
  1. FINASTERIDE (FINASTERIDE) [Suspect]
     Indication: PRODUCT USED FOR UNKNOWN INDICATION
  2. DICLOFENAC SODIUM (DICLOFENAC SODIUM) [Suspect]
     Dates: start: 20121220
  3. OMEPRAZOLE [Concomitant]
  4. PROCHLORPERAZINE [Concomitant]

REACTIONS (3)
  - Back pain [None]
  - Back pain [None]
  - Drug interaction [None]
